FAERS Safety Report 17385417 (Version 1)
Quarter: 2020Q1

REPORT INFORMATION
  Report Type: Spontaneous
  Country: US (occurrence: US)
  Receive Date: 20200206
  Receipt Date: 20200206
  Transmission Date: 20200409
  Serious: No
  Sender: FDA-Public Use
  Company Number: US-ABBVIE-19K-163-2911199-00

PATIENT
  Age: 30 Year
  Sex: Female
  Weight: 84.9 kg

DRUGS (2)
  1. METHOTREXATE. [Concomitant]
     Active Substance: METHOTREXATE
     Indication: UVEITIS
  2. HUMIRA [Suspect]
     Active Substance: ADALIMUMAB
     Indication: UVEITIS
     Route: 058
     Dates: start: 201810

REACTIONS (3)
  - Injection site pain [Not Recovered/Not Resolved]
  - Device issue [Unknown]
  - Stress [Unknown]

NARRATIVE: CASE EVENT DATE: 20190828
